FAERS Safety Report 7225479-1 (Version None)
Quarter: 2011Q1

REPORT INFORMATION
  Report Type: 
  Country: None (occurrence: None)
  Receive Date: 20110113
  Receipt Date: 20110105
  Transmission Date: 20110831
  Serious: Yes (Hospitalization, Other)
  Sender: FDA-Public Use
  Company Number: BR-SANOFI-AVENTIS-2011SA001026

PATIENT
  Age: 72 Year
  Sex: Female
  Weight: 103 kg

DRUGS (20)
  1. HUMALOG [Concomitant]
     Indication: TYPE 2 DIABETES MELLITUS
     Route: 058
  2. ALDACTONE [Concomitant]
     Indication: DIURETIC THERAPY
     Route: 048
  3. MAALOX [Concomitant]
     Route: 048
  4. PANTOPRAZOLE [Concomitant]
     Indication: GASTRIC DISORDER
  5. METFORMIN HCL [Concomitant]
     Indication: TYPE 2 DIABETES MELLITUS
     Route: 048
  6. STALEVO 100 [Concomitant]
     Route: 048
  7. OMEPRAZOLE [Concomitant]
     Route: 048
  8. PAROXETINE HYDROCHLORIDE [Concomitant]
     Indication: ANTIDEPRESSANT THERAPY
     Route: 048
  9. COLECALCIFEROL/RETINOL ACETATE [Concomitant]
     Route: 048
  10. ALLEGRA [Concomitant]
     Route: 048
  11. TRAVATAN [Concomitant]
     Indication: GLAUCOMA
  12. ACETYLSALICYLIC ACID/ALUMINIUM GLYCINATE/MAGNESIUM CARBONATE [Concomitant]
     Indication: THROMBOSIS PROPHYLAXIS
     Route: 048
  13. LANTUS [Suspect]
     Indication: TYPE 2 DIABETES MELLITUS
     Route: 058
  14. SIFROL [Concomitant]
     Route: 048
  15. CLORANA [Concomitant]
     Indication: DIURETIC THERAPY
     Route: 048
  16. ENDOFOLIN [Concomitant]
     Route: 048
  17. PROLOPA [Concomitant]
     Route: 048
  18. LASIX [Concomitant]
     Indication: DIURETIC THERAPY
     Route: 048
  19. SLOW-K [Concomitant]
     Route: 048
  20. TRAZODONE HYDROCHLORIDE [Concomitant]
     Indication: SEDATION
     Route: 048

REACTIONS (4)
  - GASTROINTESTINAL HAEMORRHAGE [None]
  - POLYP [None]
  - BACTERIAL INFECTION [None]
  - OEDEMA PERIPHERAL [None]
